FAERS Safety Report 24387721 (Version 1)
Quarter: 2024Q4

REPORT INFORMATION
  Report Type: Report from Study
  Country: CZ (occurrence: CZ)
  Receive Date: 20241002
  Receipt Date: 20241002
  Transmission Date: 20250115
  Serious: Yes (Hospitalization, Other)
  Sender: UCB
  Company Number: CZ-UCBSA-2024048948

PATIENT
  Age: 72 Year
  Sex: Female

DRUGS (3)
  1. CERTOLIZUMAB PEGOL [Suspect]
     Active Substance: CERTOLIZUMAB PEGOL
     Indication: Rheumatoid arthritis
     Dosage: 200 MILLIGRAM, EV 2 WEEKS(QOW)
     Dates: start: 20170630, end: 20231120
  2. CERTOLIZUMAB PEGOL [Suspect]
     Active Substance: CERTOLIZUMAB PEGOL
     Dosage: 200 MILLIGRAM, EV 2 WEEKS(QOW)
     Dates: end: 20240123
  3. CERTOLIZUMAB PEGOL [Suspect]
     Active Substance: CERTOLIZUMAB PEGOL
     Dosage: 200 MILLIGRAM, EV 2 WEEKS(QOW)
     Dates: end: 20240524

REACTIONS (5)
  - Arthritis bacterial [Recovering/Resolving]
  - C-reactive protein increased [Recovering/Resolving]
  - Plasma cell myeloma [Recovering/Resolving]
  - Staphylococcal sepsis [Recovering/Resolving]
  - Eye disorder [Recovering/Resolving]

NARRATIVE: CASE EVENT DATE: 20231126
